FAERS Safety Report 9286601 (Version 1)
Quarter: 2013Q2

REPORT INFORMATION
  Report Type: Spontaneous
  Country: DE (occurrence: DE)
  Receive Date: 20130513
  Receipt Date: 20130513
  Transmission Date: 20140414
  Serious: Yes (Other)
  Sender: FDA-Public Use
  Company Number: GXKR2013DE001779

PATIENT
  Age: 78 Year
  Sex: Male

DRUGS (1)
  1. ATORVASTATIN [Suspect]
     Route: 048

REACTIONS (1)
  - Lacunar infarction [Unknown]
